FAERS Safety Report 12315572 (Version 2)
Quarter: 2016Q2

REPORT INFORMATION
  Report Type: Spontaneous
  Country: PL (occurrence: PL)
  Receive Date: 20160428
  Receipt Date: 20160429
  Transmission Date: 20160815
  Serious: Yes (Hospitalization, Other)
  Sender: FDA-Public Use
  Company Number: PL-B.I. PHARMACEUTICALS,INC./RIDGEFIELD-2016-BI-25814PN

PATIENT
  Age: 75 Year
  Sex: Female

DRUGS (2)
  1. PRADAXA [Suspect]
     Active Substance: DABIGATRAN ETEXILATE MESYLATE
     Dosage: 220 MG
     Route: 065
  2. PRADAXA [Suspect]
     Active Substance: DABIGATRAN ETEXILATE MESYLATE
     Indication: PRODUCT USED FOR UNKNOWN INDICATION
     Dosage: 300 MG
     Route: 065
     Dates: start: 201601

REACTIONS (19)
  - Peripheral swelling [Unknown]
  - Chest pain [Unknown]
  - Occult blood positive [Unknown]
  - Renal cyst [Unknown]
  - Brain natriuretic peptide abnormal [Unknown]
  - Vasodilatation [Unknown]
  - Gastrointestinal disorder [Unknown]
  - Reflux laryngitis [Unknown]
  - Supraventricular tachyarrhythmia [Unknown]
  - Asthenia [Unknown]
  - Gastrointestinal haemorrhage [Not Recovered/Not Resolved]
  - Cardiac failure [Unknown]
  - Iron deficiency anaemia [Unknown]
  - Deafness bilateral [Unknown]
  - Rales [Unknown]
  - Nasal septum disorder [Unknown]
  - Varicose vein [Unknown]
  - Conjunctival pallor [Unknown]
  - Epistaxis [Unknown]
